FAERS Safety Report 19738351 (Version 1)
Quarter: 2021Q3

REPORT INFORMATION
  Report Type: Spontaneous
  Country: None (occurrence: GB)
  Receive Date: 20210824
  Receipt Date: 20210824
  Transmission Date: 20211014
  Serious: Yes (Life-Threatening)
  Sender: FDA-Public Use
  Company Number: GB-CHEPLA-2021001386

PATIENT
  Sex: Female

DRUGS (13)
  1. RITUXIMAB. [Suspect]
     Active Substance: RITUXIMAB
     Indication: HIGH GRADE B-CELL LYMPHOMA BURKITT-LIKE LYMPHOMA REFRACTORY
     Dosage: R?ICCE PROTOCOL: RITUXIMAB 375 MG/M^2 DAY 1
     Route: 042
  2. CARBOPLATIN. [Suspect]
     Active Substance: CARBOPLATIN
     Indication: HIGH GRADE B-CELL LYMPHOMA BURKITT-LIKE LYMPHOMA REFRACTORY
     Dosage: R?ICCE PROTOCOL: CARBOPLATIN 5 AUC DAY 1 (CAP DOSE AT 800 MG)
     Route: 042
  3. MESNA. [Suspect]
     Active Substance: MESNA
     Indication: HIGH GRADE B-CELL LYMPHOMA BURKITT-LIKE LYMPHOMA REFRACTORY
     Dosage: R?ICCE PROTOCOL: 2000 MG AT 2 AND 6 HOURS POST COMPLETION OF IFOSFAMIDE INFUSION
     Route: 048
  4. ETOPOSIDE PHOSPHATE [Suspect]
     Active Substance: ETOPOSIDE PHOSPHATE
     Indication: HIGH GRADE B-CELL LYMPHOMA BURKITT-LIKE LYMPHOMA REFRACTORY
     Dosage: R?ICCE PROTOCOL: ETOPOSIDE PHOSPHATE 100 MG/M^2 DAY 1?3
     Route: 042
  5. CYTARABINE. [Suspect]
     Active Substance: CYTARABINE
     Indication: HIGH GRADE B-CELL LYMPHOMA BURKITT-LIKE LYMPHOMA REFRACTORY
     Dosage: MATRIX PROTOCOL: CYTARABINE 2 G/M^2 DAY 2?3 EVERY 12 HOURS
     Route: 042
  6. RITUXIMAB. [Suspect]
     Active Substance: RITUXIMAB
     Indication: HIGH GRADE B-CELL LYMPHOMA BURKITT-LIKE LYMPHOMA REFRACTORY
     Dosage: MATRIX PROTOCOL: RITUXIMAB 375 MG/M^2 DAY 0
     Route: 042
  7. FILGASTRIM [Suspect]
     Active Substance: FILGRASTIM
     Indication: HIGH GRADE B-CELL LYMPHOMA BURKITT-LIKE LYMPHOMA REFRACTORY
     Dosage: R?ICCE PROTOCOL: FILGASTRIM 5 MICROGRAMS/KG DAY 4 AND CONTINUE DAILY UINTIL NEUTROPHIL RECOVERY
     Route: 058
  8. CARMUSTINE. [Suspect]
     Active Substance: CARMUSTINE
     Indication: HIGH GRADE B-CELL LYMPHOMA BURKITT-LIKE LYMPHOMA REFRACTORY
     Dosage: R?ICCE PROTOCOL: RITUXIMAB 400 MG/M^2 DAY 6
     Route: 042
  9. MESNA. [Suspect]
     Active Substance: MESNA
     Indication: HIGH GRADE B-CELL LYMPHOMA BURKITT-LIKE LYMPHOMA REFRACTORY
     Dosage: R?ICCE PROTOCOL: MESNA 1666 MG/M^2 DAY 1?3
     Route: 042
  10. THIOTEPA. [Suspect]
     Active Substance: THIOTEPA
     Indication: HIGH GRADE B-CELL LYMPHOMA BURKITT-LIKE LYMPHOMA REFRACTORY
     Dosage: R?ICCE PROTOCOL: THIOTEPA  5 MG/KG DAY 4?5 EVERY 12 HOURS
     Route: 042
  11. THIOTEPA. [Suspect]
     Active Substance: THIOTEPA
     Indication: HIGH GRADE B-CELL LYMPHOMA BURKITT-LIKE LYMPHOMA REFRACTORY
     Dosage: MATRIX PROTOCOL: RITUXIMAB 30 MG/M^2 DAY 4
     Route: 042
  12. METHOTREXATE. [Suspect]
     Active Substance: METHOTREXATE
     Indication: HIGH GRADE B-CELL LYMPHOMA BURKITT-LIKE LYMPHOMA REFRACTORY
     Dosage: MATRIX PROTOCOL: THIOTEPA  3.5 MG/M^2 DAY 1
     Route: 042
  13. IFOSFAMIDE. [Suspect]
     Active Substance: IFOSFAMIDE
     Indication: HIGH GRADE B-CELL LYMPHOMA BURKITT-LIKE LYMPHOMA REFRACTORY
     Dosage: R?ICCE PROTOCOL: IFOSFAMIDE 1666 MG/M^2 DAY 1?3
     Route: 042

REACTIONS (1)
  - Drug resistance [Not Recovered/Not Resolved]
